FAERS Safety Report 24083315 (Version 1)
Quarter: 2024Q3

REPORT INFORMATION
  Report Type: Other
  Country: GB (occurrence: GB)
  Receive Date: 20240712
  Receipt Date: 20240712
  Transmission Date: 20241016
  Serious: Yes (Other)
  Sender: ASPEN
  Company Number: None

PATIENT

DRUGS (1)
  1. DEXAMETHASONE [Suspect]
     Active Substance: DEXAMETHASONE
     Indication: Decreased appetite
     Dosage: 4MG OM
     Route: 065

REACTIONS (3)
  - Off label use [Unknown]
  - Agitation [Recovering/Resolving]
  - Blood ketone body [Recovering/Resolving]

NARRATIVE: CASE EVENT DATE: 20240601
